FAERS Safety Report 19056982 (Version 1)
Quarter: 2021Q1

REPORT INFORMATION
  Report Type: Spontaneous
  Country: US (occurrence: US)
  Receive Date: 20210325
  Receipt Date: 20210325
  Transmission Date: 20210420
  Serious: No
  Sender: FDA-Public Use
  Company Number: US-CELGENEUS-USA-20210304604

PATIENT
  Sex: Male

DRUGS (4)
  1. DEXAMETHASONE. [Concomitant]
     Active Substance: DEXAMETHASONE
     Indication: BLOOD TEST ABNORMAL
     Route: 048
     Dates: start: 20210201
  2. VELCADE [Concomitant]
     Active Substance: BORTEZOMIB
     Indication: BLOOD TEST ABNORMAL
     Route: 065
     Dates: start: 20210201
  3. REVLIMID [Suspect]
     Active Substance: LENALIDOMIDE
     Indication: BLOOD TEST ABNORMAL
  4. REVLIMID [Suspect]
     Active Substance: LENALIDOMIDE
     Indication: PLASMA CELL MYELOMA
     Dosage: 25 MILLIGRAM
     Route: 048
     Dates: start: 20210202

REACTIONS (1)
  - Platelet count decreased [Unknown]

NARRATIVE: CASE EVENT DATE: 2021
